FAERS Safety Report 5121036-1 (Version None)
Quarter: 2006Q4

REPORT INFORMATION
  Report Type: 
  Country: None (occurrence: None)
  Receive Date: 20061002
  Receipt Date: 20060911
  Transmission Date: 20070319
  Serious: No
  Sender: FDA-Public Use
  Company Number: JP200608000005

PATIENT
  Age: 58 Year
  Sex: Female

DRUGS (17)
  1. OLANZAPINE [Suspect]
     Indication: SCHIZOPHRENIA, PARANOID TYPE
     Dosage: 10 MG, DAILY (1/D), ORAL; 15 MG, DAILY (1/D), ORAL; 20 MG, DAILY (1/D), ORAL
     Route: 048
     Dates: start: 20060517, end: 20060531
  2. OLANZAPINE [Suspect]
     Indication: SCHIZOPHRENIA, PARANOID TYPE
     Dosage: 10 MG, DAILY (1/D), ORAL; 15 MG, DAILY (1/D), ORAL; 20 MG, DAILY (1/D), ORAL
     Route: 048
     Dates: start: 20060601, end: 20060621
  3. OLANZAPINE [Suspect]
     Indication: SCHIZOPHRENIA, PARANOID TYPE
     Dosage: 10 MG, DAILY (1/D), ORAL; 15 MG, DAILY (1/D), ORAL; 20 MG, DAILY (1/D), ORAL
     Route: 048
     Dates: start: 20060622
  4. RISPERDAL [Concomitant]
  5. CHLORPROMAZINE HCL [Concomitant]
  6. TEGRETOL [Concomitant]
  7. VEGETAMIN A     (CHLORPROMAZINE HYDROCHLORIDE, PHENOBARBITAL, PROMETHA [Concomitant]
  8. NITRAZEPAM [Concomitant]
  9. ARTANE [Concomitant]
  10. DEXCHLORPHENIRAMINE MALEATE [Concomitant]
  11. METHYCOBAL       (MECOBALAMIN) [Concomitant]
  12. VITAMEDIN          (BENFOTIAMINE, CYANOCOBALAMIN, PYRIDOXINE HYDROCHLO [Concomitant]
  13. PURSENNID             (SENNOSIDE A+B, SENNOSIDE A+B CALCIUM) [Concomitant]
  14. LAXOBERON               (SODIUM PICOSULFATE) [Concomitant]
  15. AM (ALUMINIUM HYDROXIDE GEL, DRIED, AMYLASE, CALCIUM CARBONATE, HERBAL [Concomitant]
  16. CINAL (ASCORBIC ACID, CALCIUM PANTOTHENATE)TABLET [Concomitant]
  17. TETUCUR              (FERROPOLIMALER) [Concomitant]

REACTIONS (1)
  - POLYDIPSIA [None]
